FAERS Safety Report 20485095 (Version 1)
Quarter: 2022Q1

REPORT INFORMATION
  Report Type: Spontaneous
  Country: BE (occurrence: BE)
  Receive Date: 20220217
  Receipt Date: 20220217
  Transmission Date: 20220423
  Serious: Yes (Other)
  Sender: FDA-Public Use
  Company Number: BE-LUPIN PHARMACEUTICALS INC.-2022-01977

PATIENT
  Age: 30 Year
  Sex: Female

DRUGS (7)
  1. SULFAMETHOXAZOLE AND TRIMETHOPRIM [Suspect]
     Active Substance: SULFAMETHOXAZOLE\TRIMETHOPRIM
     Indication: Fracture infection
     Dosage: 1660 MG, BID (EVERY 12 H) (DAYS 175-709)
     Route: 048
     Dates: start: 2016, end: 2018
  2. RIFAMPIN [Suspect]
     Active Substance: RIFAMPIN
     Indication: Fracture infection
     Dosage: 450 MG, QD (DAYS 175-709)
     Route: 048
     Dates: start: 2016, end: 2018
  3. ETHAMBUTOL [Suspect]
     Active Substance: ETHAMBUTOL HYDROCHLORIDE
     Indication: Fracture infection
     Dosage: 1200 MG, QD (DAYS 175-709)
     Route: 048
     Dates: start: 2016, end: 2018
  4. CLARITHROMYCIN [Suspect]
     Active Substance: CLARITHROMYCIN
     Indication: Fracture infection
     Dosage: 500 MG, BID  (DAYS 175-709)
     Route: 048
     Dates: start: 2016, end: 2018
  5. MEROPENEM [Suspect]
     Active Substance: MEROPENEM
     Indication: Fracture infection
     Dosage: UNK (UP TO 2 G EVERY 4 H), (DAY 175-709)
     Route: 042
     Dates: start: 2016, end: 2018
  6. FLUCLOXACILLIN [Suspect]
     Active Substance: FLUCLOXACILLIN
     Indication: Fracture infection
     Dosage: 2 GRAM (EVERY 4 HOURS)  (DAYS 175-709)
     Route: 042
     Dates: start: 2016, end: 2018
  7. COLISTIN [Suspect]
     Active Substance: COLISTIN
     Indication: Fracture infection
     Dosage: UNK (UP TO 20 MIU; DAY175-709)
     Route: 042
     Dates: start: 2016, end: 2018

REACTIONS (1)
  - Treatment failure [Unknown]

NARRATIVE: CASE EVENT DATE: 20160101
